FAERS Safety Report 5345667-9 (Version None)
Quarter: 2007Q2

REPORT INFORMATION
  Report Type: 
  Country: None (occurrence: None)
  Receive Date: 20070601
  Receipt Date: 20070522
  Transmission Date: 20071010
  Serious: Yes (Life-Threatening, Hospitalization, Other)
  Sender: FDA-Public Use
  Company Number: VER_00062_2007

PATIENT
  Sex: Female

DRUGS (1)
  1. EPINEPHRINE [Suspect]
     Indication: ANAPHYLACTIC REACTION
     Dosage: INTRAMUSCULAR
     Route: 030
     Dates: start: 20070401

REACTIONS (4)
  - DEVICE FAILURE [None]
  - LOSS OF CONSCIOUSNESS [None]
  - PHARMACEUTICAL PRODUCT COMPLAINT [None]
  - RESPIRATORY DISTRESS [None]
